FAERS Safety Report 4631266-0 (Version None)
Quarter: 2005Q2

REPORT INFORMATION
  Report Type: 
  Country: None (occurrence: None)
  Receive Date: 20050406
  Receipt Date: 20050323
  Transmission Date: 20051028
  Serious: Yes (Death, Other)
  Sender: FDA-Public Use
  Company Number: US_0502113229

PATIENT
  Age: 85 Year
  Sex: Male

DRUGS (6)
  1. CYMBALTA [Suspect]
     Indication: DEPRESSION
     Dosage: 30 MG DAY
     Dates: start: 20050120, end: 20050124
  2. NEURONTIN (GABAPENTIN PFIZER) [Concomitant]
  3. INSULIN [Concomitant]
  4. MORPHINE SULFATE [Concomitant]
  5. ZOLPIDEM TARTRATE [Concomitant]
  6. PROPOXYPHENE NAPSYLATE W/ ACETAMINOPHEN [Concomitant]

REACTIONS (5)
  - CONDITION AGGRAVATED [None]
  - LUNG INFILTRATION [None]
  - PNEUMONIA ASPIRATION [None]
  - RESPIRATORY FAILURE [None]
  - VOMITING PROJECTILE [None]
